FAERS Safety Report 9900729 (Version 3)
Quarter: 2014Q1

REPORT INFORMATION
  Report Type: Spontaneous
  Country: CH (occurrence: CH)
  Receive Date: 20140217
  Receipt Date: 20140330
  Transmission Date: 20141002
  Serious: Yes (Hospitalization)
  Sender: FDA-Public Use
  Company Number: CH-AMGEN-CHESP2014010506

PATIENT
  Age: 26 Year
  Sex: Male

DRUGS (8)
  1. NEUPOGEN [Suspect]
     Indication: ACUTE LEUKAEMIA
     Dosage: 30 MIO
     Route: 058
     Dates: start: 20130828, end: 20130903
  2. RITUXIMAB [Suspect]
     Indication: ACUTE LEUKAEMIA
     Dosage: 750 MG, UNK
     Route: 042
     Dates: start: 20130822, end: 20130822
  3. CYCLOPHOSPHAMIDE [Suspect]
     Indication: ACUTE LEUKAEMIA
     Dosage: 1500 MG, UNK
     Route: 042
     Dates: start: 20130825, end: 20130825
  4. ASPARAGINASE [Suspect]
     Indication: ACUTE LEUKAEMIA
     Dosage: 12000 UNK, UNK
     Route: 042
     Dates: start: 20130822, end: 20130903
  5. PREDNISONE [Suspect]
     Indication: ACUTE LEUKAEMIA
     Dosage: 100 MUG, UNK
     Route: 048
     Dates: start: 20130822, end: 20130824
  6. DAUNORUBICIN                       /00128202/ [Suspect]
     Indication: ACUTE LEUKAEMIA
     Dosage: 60 MG, UNK
     Route: 042
     Dates: start: 20130825, end: 20130826
  7. DIFLUCAN [Concomitant]
     Dosage: 200 MG, UNK
     Route: 048
     Dates: start: 20130822
  8. VALTREX [Concomitant]
     Dosage: 1000 MG, UNK
     Route: 048
     Dates: start: 20130822

REACTIONS (1)
  - Infection [Recovered/Resolved with Sequelae]
